FAERS Safety Report 23682199 (Version 1)
Quarter: 2024Q1

REPORT INFORMATION
  Report Type: Spontaneous
  Country: US (occurrence: US)
  Receive Date: 20240328
  Receipt Date: 20240328
  Transmission Date: 20240410
  Serious: No
  Sender: FDA-Public Use
  Company Number: US-BAYER-2024A040627

PATIENT

DRUGS (2)
  1. MIRALAX [Suspect]
     Active Substance: POLYETHYLENE GLYCOL 3350
     Indication: Constipation
     Dosage: UNK UNK, QD
     Route: 048
  2. MAGNESIUM [Suspect]
     Active Substance: MAGNESIUM
     Dosage: MINIMUM OF 1000 MG, QD
     Route: 048

REACTIONS (1)
  - Drug ineffective [None]
